FAERS Safety Report 10059266 (Version 2)
Quarter: 2014Q2

REPORT INFORMATION
  Report Type: Spontaneous
  Country: SE (occurrence: SE)
  Receive Date: 20140404
  Receipt Date: 20140417
  Transmission Date: 20141212
  Serious: Yes (Other)
  Sender: FDA-Public Use
  Company Number: SE-PFIZER INC-2014091052

PATIENT
  Age: 73 Year
  Sex: Male

DRUGS (1)
  1. CAVERJECT DUAL [Suspect]
     Indication: ERECTILE DYSFUNCTION
     Dosage: 20 MG, UNK
     Route: 017

REACTIONS (2)
  - Wrong technique in drug usage process [Unknown]
  - Urethral haemorrhage [Recovering/Resolving]
